FAERS Safety Report 16660672 (Version 1)
Quarter: 2019Q3

REPORT INFORMATION
  Report Type: Spontaneous
  Country: FR (occurrence: FR)
  Receive Date: 20190802
  Receipt Date: 20190802
  Transmission Date: 20191004
  Serious: Yes (Hospitalization)
  Sender: FDA-Public Use
  Company Number: FR-JNJFOC-20190800685

PATIENT
  Age: 89 Year
  Sex: Female
  Weight: 54.1 kg

DRUGS (5)
  1. TRAMADOL HYDROCHLORIDE. [Suspect]
     Active Substance: TRAMADOL HYDROCHLORIDE
     Indication: PRODUCT USED FOR UNKNOWN INDICATION
     Dosage: 37.5 MG, UNK
     Route: 048
     Dates: start: 20180715
  2. EPLERENONE. [Suspect]
     Active Substance: EPLERENONE
     Indication: HYPERTROPHIC CARDIOMYOPATHY
     Dosage: 25 MG, 1/DAY
     Route: 048
     Dates: end: 20180724
  3. FUROSEMIDE. [Suspect]
     Active Substance: FUROSEMIDE
     Indication: CARDIAC FAILURE
     Dosage: 40 MG, 1/DAY
     Route: 048
  4. BISOPROLOL [Suspect]
     Active Substance: BISOPROLOL
     Indication: HYPERTROPHIC CARDIOMYOPATHY
     Dosage: 1.25 MG, 1/DAY
     Route: 048
  5. ELIQUIS [Suspect]
     Active Substance: APIXABAN
     Indication: ATRIAL FIBRILLATION
     Dosage: 5 MG, 1/DAY
     Route: 048
     Dates: start: 2016

REACTIONS (3)
  - Fall [Recovered/Resolved]
  - Confusional state [Recovered/Resolved]
  - Hypotension [Recovered/Resolved]

NARRATIVE: CASE EVENT DATE: 20180715
